FAERS Safety Report 8524701-9 (Version None)
Quarter: 2012Q3

REPORT INFORMATION
  Report Type: 
  Country: None (occurrence: None)
  Receive Date: 20120710
  Receipt Date: 20120626
  Transmission Date: 20120928
  Serious: Yes (Other)
  Sender: FDA-Public Use
  Company Number: 2012MA008065

PATIENT
  Age: 61 Year
  Sex: Female

DRUGS (5)
  1. CITALOPRAM HYDROBROMIDE [Suspect]
     Indication: DEPRESSION
     Dosage: 10 MG;QD;
     Dates: end: 20120601
  2. FLOXACILLIN SODIUM [Suspect]
     Indication: GASTROENTERITIS
  3. LACTOBACILLUS ACIDOPHILUS [Concomitant]
  4. .. [Concomitant]
  5. FLUCLOXACILLIN [Concomitant]

REACTIONS (9)
  - MEMORY IMPAIRMENT [None]
  - URINARY TRACT INFECTION [None]
  - DIARRHOEA [None]
  - LIVER FUNCTION TEST ABNORMAL [None]
  - HEADACHE [None]
  - HAEMATURIA [None]
  - FLATULENCE [None]
  - IMMUNOGLOBULINS INCREASED [None]
  - SOMNOLENCE [None]
